FAERS Safety Report 19001322 (Version 1)
Quarter: 2021Q1

REPORT INFORMATION
  Report Type: Report from Study
  Country: None (occurrence: US)
  Receive Date: 20210311
  Receipt Date: 20210311
  Transmission Date: 20210420
  Serious: Yes (Hospitalization)
  Sender: FDA-Public Use
  Company Number: US-ABBVIE-21K-163-3805259-00

PATIENT
  Age: 57 Year
  Sex: Female

DRUGS (2)
  1. HUMIRA [Suspect]
     Active Substance: ADALIMUMAB
     Indication: ANKYLOSING SPONDYLITIS
     Route: 058
     Dates: start: 20210226
  2. HUMIRA [Suspect]
     Active Substance: ADALIMUMAB
     Indication: PSORIATIC ARTHROPATHY
     Route: 058
     Dates: end: 202004

REACTIONS (10)
  - Infection [Recovered/Resolved]
  - Joint range of motion decreased [Recovered/Resolved]
  - Joint stiffness [Recovered/Resolved]
  - Sleep disorder [Recovered/Resolved]
  - Neuralgia [Recovered/Resolved]
  - Anxiety [Recovered/Resolved]
  - Joint swelling [Recovered/Resolved]
  - Arthralgia [Recovered/Resolved]
  - Herpes zoster [Unknown]
  - Salivary duct obstruction [Recovered/Resolved]

NARRATIVE: CASE EVENT DATE: 2019
